FAERS Safety Report 4287715-3 (Version None)
Quarter: 2004Q1

REPORT INFORMATION
  Report Type: 
  Country: None (occurrence: None)
  Receive Date: 20040209
  Receipt Date: 20030904
  Transmission Date: 20041129
  Serious: No
  Sender: FDA-Public Use
  Company Number: US-GLAXOSMITHKLINE-A0424912A

PATIENT
  Sex: Male

DRUGS (1)
  1. PAXIL CR [Suspect]
     Indication: DEPRESSION
     Dates: start: 20030201, end: 20030801

REACTIONS (3)
  - ARTHRALGIA [None]
  - HYPOAESTHESIA [None]
  - PAIN IN EXTREMITY [None]
